FAERS Safety Report 13278363 (Version 1)
Quarter: 2017Q1

REPORT INFORMATION
  Report Type: Spontaneous
  Country: US (occurrence: US)
  Receive Date: 20170228
  Receipt Date: 20170228
  Transmission Date: 20170428
  Serious: No
  Sender: FDA-Public Use
  Company Number: US-SEBELA IRELAND LIMITED-2016SEB00176

PATIENT
  Age: 86 Year
  Sex: Female
  Weight: 53.52 kg

DRUGS (2)
  1. LOTRONEX [Suspect]
     Active Substance: ALOSETRON HYDROCHLORIDE
     Indication: IRRITABLE BOWEL SYNDROME
     Dosage: 0.5 MG, TWICE DAILY
     Route: 048
     Dates: start: 201505
  2. FOSAMAX [Concomitant]
     Active Substance: ALENDRONATE SODIUM
     Dosage: UNK

REACTIONS (1)
  - Drug ineffective [Unknown]

NARRATIVE: CASE EVENT DATE: 201506
